FAERS Safety Report 4721967-8 (Version None)
Quarter: 2005Q3

REPORT INFORMATION
  Report Type: 
  Country: None (occurrence: None)
  Receive Date: 20050722
  Receipt Date: 20020204
  Transmission Date: 20060218
  Serious: Yes (Hospitalization, Other)
  Sender: FDA-Public Use
  Company Number: PHBS2002JP01764

PATIENT
  Age: 50 Year
  Sex: Male
  Weight: 58 kg

DRUGS (6)
  1. PERSANTIN-L [Concomitant]
     Dates: start: 20011001
  2. URALYT [Concomitant]
     Dates: start: 20011001
  3. LANDEL [Concomitant]
     Dates: start: 20010412, end: 20020214
  4. ACECOL [Concomitant]
     Dates: start: 20011001
  5. DIOVAN [Concomitant]
     Dates: start: 20011001
  6. GLEEVEC [Suspect]
     Dosage: 300 MG, QD
     Route: 048
     Dates: start: 20020110

REACTIONS (11)
  - EOSINOPHIL COUNT INCREASED [None]
  - ERYTHEMA MULTIFORME [None]
  - EYELID OEDEMA [None]
  - INFLUENZA LIKE ILLNESS [None]
  - NAUSEA [None]
  - PLATELET COUNT DECREASED [None]
  - PYREXIA [None]
  - SWELLING [None]
  - TOXIC SKIN ERUPTION [None]
  - VOMITING [None]
  - WHITE BLOOD CELL COUNT DECREASED [None]
